FAERS Safety Report 4815429-7 (Version None)
Quarter: 2005Q4

REPORT INFORMATION
  Report Type: 
  Country: None (occurrence: None)
  Receive Date: 20051031
  Receipt Date: 20051011
  Transmission Date: 20060501
  Serious: Yes (Hospitalization)
  Sender: FDA-Public Use
  Company Number: JP-BOEHRINGER INGELHEIM PHARMACEUTICALS, INC.-2005-BP-18283NB

PATIENT
  Sex: Male

DRUGS (3)
  1. MICARDIS [Suspect]
     Indication: HYPERTENSION
     Route: 048
     Dates: end: 20050928
  2. ALEVIATIN (PHENYTOIN) [Concomitant]
     Indication: HEMIPLEGIA
     Route: 048
  3. GASTER [Concomitant]
     Indication: GASTRITIS
     Route: 048

REACTIONS (1)
  - HYPONATRAEMIA [None]
